FAERS Safety Report 8872784 (Version 2)
Quarter: 2013Q1

REPORT INFORMATION
  Report Type: Spontaneous
  Country: US (occurrence: US)
  Receive Date: 20121029
  Receipt Date: 20130117
  Transmission Date: 20140127
  Serious: Yes (Other)
  Sender: FDA-Public Use
  Company Number: US-PFIZER INC-2012265727

PATIENT
  Age: 74 Year
  Sex: Female
  Weight: 70 kg

DRUGS (5)
  1. PREMARIN [Suspect]
     Indication: HORMONE REPLACEMENT THERAPY
     Dosage: 0.625 MG, 1X/DAY
     Route: 048
  2. PREMARIN [Suspect]
     Dosage: 0.3 MG, 1X/DAY
     Route: 048
  3. NADOLOL [Concomitant]
     Dosage: 20 MG, 1X/DAY
  4. INDAPAMIDE [Concomitant]
     Dosage: 1.25 MG, 1X/DAY
  5. POTASSIUM [Concomitant]
     Dosage: UNK, EVERY OTHER DAY

REACTIONS (4)
  - Hip fracture [Recovering/Resolving]
  - Arthropathy [Recovering/Resolving]
  - Pain [Recovering/Resolving]
  - Hyperhidrosis [Unknown]
